FAERS Safety Report 16004995 (Version 1)
Quarter: 2019Q1

REPORT INFORMATION
  Report Type: Other
  Country: DE (occurrence: DE)
  Receive Date: 20190226
  Receipt Date: 20190226
  Transmission Date: 20190418
  Serious: Yes (Hospitalization, Other)
  Sender: FDA-Public Use
  Company Number: DE-LUPIN PHARMACEUTICALS INC.-2019-01025

PATIENT
  Age: 17 Year
  Sex: Male
  Weight: 67 kg

DRUGS (3)
  1. QUETIAPINE TABLETS [Suspect]
     Active Substance: QUETIAPINE
     Indication: PRODUCT USED FOR UNKNOWN INDICATION
     Dosage: 200 MILLIGRAM (INTAKE ABOUT 8:45 CLOCK)
     Route: 048
     Dates: start: 20180715, end: 20180715
  2. ARIPIPRAZOL-HORMOSAN TABLETTEN [Suspect]
     Active Substance: ARIPIPRAZOLE
     Indication: PRODUCT USED FOR UNKNOWN INDICATION
     Dosage: 5 MILLIGRAM, (INTAKE ABOUT 8:45 CLOCK)
     Route: 048
     Dates: start: 20180715, end: 20180715
  3. RISPERIDONE. [Suspect]
     Active Substance: RISPERIDONE
     Indication: PRODUCT USED FOR UNKNOWN INDICATION
     Dosage: 3 MILLIGRAM, (INTAKE ABOUT 8:45 CLOCK)
     Route: 048
     Dates: start: 20180715, end: 20180715

REACTIONS (4)
  - Seizure [Recovered/Resolved]
  - Product dose omission [Unknown]
  - Wrong product administered [Unknown]
  - Product administration error [Unknown]

NARRATIVE: CASE EVENT DATE: 20180715
